FAERS Safety Report 6308211-5 (Version None)
Quarter: 2009Q3

REPORT INFORMATION
  Report Type: 
  Country: None (occurrence: None)
  Receive Date: 20090813
  Receipt Date: 20090803
  Transmission Date: 20100115
  Serious: Yes (Other)
  Sender: FDA-Public Use
  Company Number: US-PFIZER INC-2009250401

PATIENT
  Sex: Male
  Weight: 107.48 kg

DRUGS (6)
  1. CHANTIX [Suspect]
     Indication: SMOKING CESSATION THERAPY
     Dosage: FREQUENCY: 2X/DAY, EVERYDAY;
     Route: 048
     Dates: start: 20090423, end: 20090601
  2. LIPITOR [Suspect]
     Indication: BLOOD CHOLESTEROL INCREASED
     Route: 048
  3. PLAVIX [Concomitant]
     Dosage: UNK
     Route: 048
     Dates: start: 20050101
  4. LOPRESSOR [Concomitant]
     Dosage: UNK
     Route: 048
     Dates: start: 20050101
  5. LISINOPRIL [Concomitant]
     Dosage: UNK
     Route: 048
     Dates: start: 20050101
  6. ACETYLSALICYLIC ACID [Concomitant]
     Dosage: UNK
     Route: 048
     Dates: start: 20050101

REACTIONS (4)
  - DEPRESSION [None]
  - HEPATIC ENZYME INCREASED [None]
  - NIGHTMARE [None]
  - SUICIDAL IDEATION [None]
